FAERS Safety Report 9642218 (Version 2)
Quarter: 2013Q4

REPORT INFORMATION
  Report Type: Spontaneous
  Country: AU (occurrence: AU)
  Receive Date: 20131024
  Receipt Date: 20131024
  Transmission Date: 20140711
  Serious: Yes (Other)
  Sender: FDA-Public Use
  Company Number: AU-PFIZER INC-2013285170

PATIENT
  Age: 75 Year
  Sex: Female
  Weight: 59.7 kg

DRUGS (15)
  1. LYRICA [Suspect]
     Indication: NEURALGIA
     Dosage: 150 MG, 2X/DAY
     Route: 048
  2. ACLASTA [Concomitant]
     Dosage: 5 MG, UNK
     Route: 048
  3. CELLUFRESH [Concomitant]
     Dosage: 2 DROPS THREE TIMES A DAY BOTH SIDES
  4. COVERSYL PLUS [Concomitant]
     Dosage: 5MG/1.25MG, ONE IN THE MORNING
  5. CRESTOR [Concomitant]
     Dosage: 10 MG, 1X/DAY
     Route: 048
  6. CYMBALTA [Concomitant]
     Dosage: 30 MG, ONE IN THE MORNING
     Route: 048
  7. EPILIM EC [Concomitant]
     Dosage: 200 MG, TWO IN THE EVENING, THREE IN MORNING
     Route: 048
  8. FELODUR ER [Concomitant]
     Dosage: 5 MG, 1X/DAY
  9. MICARDIS [Concomitant]
     Dosage: 40 MG, 1X/DAY
  10. NORSPAN [Concomitant]
     Dosage: 1OMCG/HR, APPLY WEEKLY
     Route: 061
  11. OSTELIN VITAMIN D [Concomitant]
     Dosage: 1000 IU, 1X/DAY
  12. PANADEINE FORTE [Concomitant]
     Dosage: 500MG;30MG TWO, THREE TIMES A DAY
     Route: 048
  13. PANAFCORTELONE [Concomitant]
     Dosage: 1 MG, THREE IN THE MORNING WITH MEAIS, AS DIRECTED
  14. PLAQUENIL [Concomitant]
     Dosage: 200 MG, 1X/DAY
     Route: 048
  15. SOMAC [Concomitant]
     Dosage: 40 MG, ONE, TWICE A DAY
     Route: 048

REACTIONS (4)
  - Depression [Unknown]
  - Social avoidant behaviour [Unknown]
  - Feeling abnormal [Unknown]
  - Decreased interest [Unknown]
